FAERS Safety Report 10789329 (Version 1)
Quarter: 2015Q1

REPORT INFORMATION
  Report Type: Spontaneous
  Country: AU (occurrence: AU)
  Receive Date: 20150212
  Receipt Date: 20150212
  Transmission Date: 20150721
  Serious: Yes (Hospitalization)
  Sender: FDA-Public Use
  Company Number: AU-MYLANLABS-2015M1004170

PATIENT

DRUGS (1)
  1. AKAMIN 50 [Suspect]
     Active Substance: MINOCYCLINE HYDROCHLORIDE
     Indication: ACNE
     Dosage: 50 MG, BID
     Dates: start: 20141001, end: 20150127

REACTIONS (4)
  - Diarrhoea haemorrhagic [Not Recovered/Not Resolved]
  - Nausea [Not Recovered/Not Resolved]
  - Abdominal pain [Not Recovered/Not Resolved]
  - Diarrhoea [Not Recovered/Not Resolved]

NARRATIVE: CASE EVENT DATE: 20150103
